FAERS Safety Report 13396035 (Version 3)
Quarter: 2017Q2

REPORT INFORMATION
  Report Type: Report from Study
  Country: US (occurrence: US)
  Receive Date: 20170403
  Receipt Date: 20170425
  Transmission Date: 20170830
  Serious: No
  Sender: FDA-Public Use
  Company Number: PHEH2017US009257

PATIENT
  Sex: Male
  Weight: 83.9 kg

DRUGS (1)
  1. TASIGNA [Suspect]
     Active Substance: NILOTINIB
     Indication: PRODUCT USED FOR UNKNOWN INDICATION
     Dosage: 150 MG, BID
     Route: 065

REACTIONS (6)
  - Herpes zoster [Unknown]
  - Body temperature decreased [Unknown]
  - Dysstasia [Unknown]
  - Eye pain [Unknown]
  - Headache [Unknown]
  - Fatigue [Unknown]
